FAERS Safety Report 7463808-4 (Version None)
Quarter: 2011Q2

REPORT INFORMATION
  Report Type: 
  Country: None (occurrence: None)
  Receive Date: 20110506
  Receipt Date: 20110412
  Transmission Date: 20111010
  Serious: Yes (Hospitalization, Other)
  Sender: FDA-Public Use
  Company Number: US-BAYER-201038704NA

PATIENT
  Age: 29 Year
  Sex: Female
  Weight: 64.853 kg

DRUGS (3)
  1. YAZ [Suspect]
     Indication: ORAL CONTRACEPTION
     Route: 048
     Dates: start: 20060626, end: 20070209
  2. DICYCLOMINE [Concomitant]
     Dosage: UNK
     Dates: start: 20060701
  3. IBUPROFEN [Concomitant]
     Indication: HEADACHE

REACTIONS (1)
  - PULMONARY EMBOLISM [None]
